FAERS Safety Report 8259184 (Version 2)
Quarter: 2013Q3

REPORT INFORMATION
  Report Type: Report from Study
  Country: TR (occurrence: TR)
  Receive Date: 20111122
  Receipt Date: 20130926
  Transmission Date: 20140515
  Serious: Yes (Hospitalization, Other)
  Sender: FDA-Public Use
  Company Number: PHHY2011TR101383

PATIENT
  Age: 63 Year
  Sex: Female
  Weight: 89.5 kg

DRUGS (6)
  1. EVEROLIMUS [Suspect]
     Dosage: 1.25 MG/DAY (0.75 + 0.50 MG)
     Route: 048
     Dates: start: 20110404, end: 20111028
  2. SANDIMMUN NEORAL [Concomitant]
     Dosage: 125 MG/DAY (75 + 50 MG)
     Dates: start: 20110404, end: 20110418
  3. SANDIMMUN NEORAL [Concomitant]
     Dosage: 50 MG, BID
     Dates: start: 20110419, end: 20110512
  4. SANDIMMUN NEORAL [Concomitant]
     Dosage: 125 MG/DAY (50 + 25 MG)
     Dates: start: 20110512, end: 20110608
  5. SANDIMMUN NEORAL [Concomitant]
     Dosage: 50 MG, BID
     Dates: start: 20110608, end: 20110921
  6. SANDIMMUN NEORAL [Concomitant]
     Dosage: 125 MG/DAY (50 + 25 MG)
     Dates: start: 20110921, end: 20111026

REACTIONS (4)
  - Anaemia [Recovered/Resolved]
  - Diabetic foot [Recovered/Resolved]
  - Skin lesion [Recovered/Resolved]
  - Impaired healing [Unknown]
